FAERS Safety Report 9200518 (Version 1)
Quarter: 2013Q1

REPORT INFORMATION
  Report Type: Report from Study
  Country: DE (occurrence: DE)
  Receive Date: 20130329
  Receipt Date: 20130329
  Transmission Date: 20140127
  Serious: Yes (Hospitalization)
  Sender: FDA-Public Use
  Company Number: DE-ABBOTT-13P-062-1068495-00

PATIENT
  Age: 41 Year
  Sex: Female
  Weight: 77 kg

DRUGS (5)
  1. HUMIRA [Suspect]
     Indication: CROHN^S DISEASE
     Route: 058
     Dates: start: 20120917, end: 20130114
  2. HUMIRA [Suspect]
     Route: 058
     Dates: start: 201303
  3. AZATHIOPRINE [Suspect]
     Indication: CROHN^S DISEASE
     Route: 048
     Dates: start: 201205
  4. ASA [Suspect]
     Indication: PRODUCT USED FOR UNKNOWN INDICATION
  5. PREDNISOLONE [Concomitant]
     Indication: CROHN^S DISEASE
     Dosage: 5-25 MG DAILY
     Dates: end: 2013

REACTIONS (1)
  - Anal abscess [Recovered/Resolved]
